FAERS Safety Report 6856243-0 (Version None)
Quarter: 2010Q3

REPORT INFORMATION
  Report Type: 
  Country: None (occurrence: None)
  Receive Date: 20100719
  Receipt Date: 20100715
  Transmission Date: 20110219
  Serious: Yes (Death)
  Sender: FDA-Public Use
  Company Number: US-ASTRAZENECA-2010SE30547

PATIENT
  Age: 40 Year
  Sex: Female
  Weight: 101.2 kg

DRUGS (3)
  1. SEROQUEL [Suspect]
     Route: 048
  2. NEXIUM [Concomitant]
  3. TRIVORA-21 [Concomitant]

REACTIONS (3)
  - CARDIOMEGALY [None]
  - DRUG LEVEL [None]
  - NEOPLASM [None]
